FAERS Safety Report 4642654-0 (Version None)
Quarter: 2005Q2

REPORT INFORMATION
  Report Type: 
  Country: None (occurrence: None)
  Receive Date: 20050422
  Receipt Date: 20050412
  Transmission Date: 20051028
  Serious: Yes (Hospitalization, Other)
  Sender: FDA-Public Use
  Company Number: CA-JNJFOC-20050403399

PATIENT
  Sex: Female
  Weight: 52.16 kg

DRUGS (3)
  1. TOPAMAX [Suspect]
     Dosage: 25 MG TITRATED UP TO 50 MG BID
  2. TOPAMAX [Suspect]
     Indication: MIGRAINE
  3. CHLORPROMAZINE [Suspect]
     Indication: DRUG USE FOR UNKNOWN INDICATION

REACTIONS (9)
  - ADVERSE DRUG REACTION [None]
  - ANOREXIA [None]
  - ARRHYTHMIA [None]
  - DRY MOUTH [None]
  - FATIGUE [None]
  - ORAL DISCOMFORT [None]
  - PALPITATIONS [None]
  - SENSATION OF HEAVINESS [None]
  - SOMNOLENCE [None]
